FAERS Safety Report 5431626-4 (Version None)
Quarter: 2007Q3

REPORT INFORMATION
  Report Type: 
  Country: None (occurrence: None)
  Receive Date: 20070830
  Receipt Date: 20070828
  Transmission Date: 20080115
  Serious: Yes (Hospitalization, Other)
  Sender: FDA-Public Use
  Company Number: US-ELI_LILLY_AND_COMPANY-US200706002988

PATIENT
  Age: 89 Year
  Sex: Female
  Weight: 38.095 kg

DRUGS (5)
  1. ZYPREXA [Suspect]
     Dosage: 2.5 MG, UNK
     Dates: start: 20040101, end: 20050801
  2. RISPERIDONE [Concomitant]
     Dosage: UNK, UNK
     Dates: start: 20040701
  3. RISPERIDONE [Concomitant]
     Dosage: UNK, UNK
     Dates: start: 20060301, end: 20070101
  4. METOPROLOL SUCCINATE [Concomitant]
     Dosage: UNK, UNK
     Dates: start: 20050415, end: 20070110
  5. QUETIAPINE FUMARATE [Concomitant]
     Dates: start: 20051029, end: 20051129

REACTIONS (8)
  - DIABETES MELLITUS [None]
  - HYPERGLYCAEMIA [None]
  - HYPERTENSION [None]
  - PANCREATITIS [None]
  - THROMBOSIS [None]
  - VISION BLURRED [None]
  - WEIGHT DECREASED [None]
  - WEIGHT INCREASED [None]
